FAERS Safety Report 6922514-2 (Version None)
Quarter: 2010Q3

REPORT INFORMATION
  Report Type: 
  Country: None (occurrence: None)
  Receive Date: 20100813
  Receipt Date: 20100805
  Transmission Date: 20110219
  Serious: Yes (Death, Hospitalization, Other)
  Sender: FDA-Public Use
  Company Number: TW-BAYER-201026546GPV

PATIENT
  Age: 56 Year
  Sex: Male
  Weight: 67 kg

DRUGS (11)
  1. SORAFENIB [Suspect]
     Indication: HEPATIC NEOPLASM MALIGNANT
     Route: 048
     Dates: start: 20100427, end: 20100504
  2. SORAFENIB [Suspect]
     Route: 048
     Dates: start: 20100518, end: 20100524
  3. ERLOTINIB OR PLACEBO [Suspect]
     Indication: HEPATIC NEOPLASM MALIGNANT
     Route: 048
     Dates: start: 20100518, end: 20100524
  4. ERLOTINIB OR PLACEBO [Suspect]
     Route: 048
     Dates: start: 20100427, end: 20100504
  5. SCANOL [Concomitant]
     Indication: PYREXIA
     Route: 048
     Dates: start: 20100504
  6. SENOKOT [Concomitant]
     Dosage: TOTAL DAILY DOSE: 15.0 MG
     Route: 048
  7. MAGNESIUM OXIDE [Concomitant]
     Dosage: TOTAL DAILY DOSE: 500 MG
     Route: 048
  8. MORPHINE [Concomitant]
     Dosage: Q8HV
     Route: 048
  9. MORPHINE [Concomitant]
     Dosage: 10 MG Q6H PRN
     Route: 048
  10. INDERAL [Concomitant]
     Dosage: TOTAL DAILY DOSE: 20 MG
     Route: 048
  11. MORPHINE SULFATE [Concomitant]
     Dosage: 30MG 1 TAB Q8HV
     Route: 048

REACTIONS (7)
  - ACNE [None]
  - BRONCHITIS [None]
  - DIARRHOEA [None]
  - DYSPNOEA [None]
  - GASTROINTESTINAL HAEMORRHAGE [None]
  - PNEUMONIA [None]
  - PYREXIA [None]
